FAERS Safety Report 5029217-2 (Version None)
Quarter: 2006Q2

REPORT INFORMATION
  Report Type: 
  Country: None (occurrence: None)
  Receive Date: 20060616
  Receipt Date: 20060616
  Transmission Date: 20061013
  Serious: Yes (Disabling)
  Sender: FDA-Public Use
  Company Number: None

PATIENT
  Age: 46 Year
  Sex: Female
  Weight: 77.6 kg

DRUGS (1)
  1. RASBURICASE     1.5 MG      SANOFI-SYNTHALABO [Suspect]
     Indication: BLOOD URIC ACID INCREASED
     Dosage: 1.5MG  DAILY X3 DAYS  IV
     Route: 042
     Dates: start: 20060317, end: 20060319

REACTIONS (3)
  - BLOOD BILIRUBIN INCREASED [None]
  - CONDITION AGGRAVATED [None]
  - THROMBOCYTOPENIA [None]
